FAERS Safety Report 24822143 (Version 2)
Quarter: 2025Q1

REPORT INFORMATION
  Report Type: Spontaneous
  Country: US (occurrence: US)
  Receive Date: 20250108
  Receipt Date: 20250203
  Transmission Date: 20250408
  Serious: No
  Sender: PFIZER
  Company Number: US-PFIZER INC-202500002333

PATIENT
  Age: 71 Year
  Sex: Female
  Weight: 65.77 kg

DRUGS (2)
  1. PAXLOVID [Suspect]
     Active Substance: NIRMATRELVIR\RITONAVIR
     Indication: COVID-19 treatment
     Dosage: 300 /100 MILLIGRAMS;I TAKE THE THREE IN THE MORNING/I TAKE THREE BEFORE I GO TO BED
     Dates: start: 20250101
  2. ESTRADIOL [Concomitant]
     Active Substance: ESTRADIOL
     Dosage: UNK, 2X/WEEK
     Route: 062

REACTIONS (6)
  - Presyncope [Recovered/Resolved]
  - Dizziness [Unknown]
  - Faeces pale [Unknown]
  - Dysgeusia [Unknown]
  - Ageusia [Unknown]
  - Anosmia [Unknown]

NARRATIVE: CASE EVENT DATE: 20250103
